FAERS Safety Report 12727098 (Version 1)
Quarter: 2016Q3

REPORT INFORMATION
  Report Type: Report from Study
  Country: BR (occurrence: BR)
  Receive Date: 20160909
  Receipt Date: 20160909
  Transmission Date: 20161109
  Serious: Yes (Hospitalization)
  Sender: FDA-Public Use
  Company Number: BR-BIOGEN-2016BI00289221

PATIENT
  Age: 24 Year
  Sex: Female

DRUGS (1)
  1. TECFIDERA [Suspect]
     Active Substance: DIMETHYL FUMARATE
     Indication: MULTIPLE SCLEROSIS
     Route: 065

REACTIONS (19)
  - Balance disorder [Unknown]
  - Dizziness [Unknown]
  - Dysgraphia [Unknown]
  - Taciturnity [Unknown]
  - Hypersomnia [Unknown]
  - Amnesia [Unknown]
  - Pain [Recovered/Resolved]
  - Crying [Unknown]
  - Disturbance in attention [Unknown]
  - Daydreaming [Unknown]
  - Headache [Unknown]
  - Memory impairment [Unknown]
  - Fatigue [Unknown]
  - Mental impairment [Unknown]
  - Malaise [Unknown]
  - Muscular weakness [Unknown]
  - Hypoaesthesia [Unknown]
  - Pain in extremity [Unknown]
  - Peripheral coldness [Unknown]

NARRATIVE: CASE EVENT DATE: 20160801
